FAERS Safety Report 9327202 (Version 1)
Quarter: 2013Q2

REPORT INFORMATION
  Report Type: Spontaneous
  Country: US (occurrence: None)
  Receive Date: 20130530
  Receipt Date: 20130530
  Transmission Date: 20140414
  Serious: Yes (Hospitalization, Other)
  Sender: FDA-Public Use
  Company Number: 2012SGN00485

PATIENT
  Age: 77 Year
  Sex: Male

DRUGS (13)
  1. ADCETRIS (BRENTUXIMAB VEDOTIN) INJECTION [Suspect]
     Indication: ANAPLASTIC LARGE-CELL LYMPHOMA
     Dosage: 150 MG, Q21D, INTRAVENOUS
     Route: 042
     Dates: start: 20120822, end: 20120822
  2. LEVOTHROID (LEVOTHYROXINE SODIUM) [Concomitant]
  3. VALTREX (VALACICLOVIR HYDROCHLORIDE) [Concomitant]
  4. LOPERAMIDE HCL (LOPERAMIDE HYDROCHLORIDE) [Concomitant]
  5. ALLOPURINOL [Concomitant]
  6. INSULIN (INSULIN PORCINE) [Concomitant]
  7. SIMVASTATIN (SIMVASTATIN) [Concomitant]
  8. METOPROLOL (METOPROLOL TARTRATE) [Concomitant]
  9. FLOMAX (TAMSULOSIN (HYDROCHLORIDE) [Concomitant]
  10. HYDROCHLOROTHIAZIDE (HYDROCHLOROTHIAZIDE) [Concomitant]
  11. FELODIPINE (FELODIPINE) [Concomitant]
  12. MAGNESIUM OXIDE (MAGNESIUM OXIDE) [Concomitant]
  13. KLOR-CON (POTASSIUM CHLORIDE) [Concomitant]

REACTIONS (6)
  - Post procedural haemorrhage [None]
  - Neuropathy peripheral [None]
  - Peripheral sensory neuropathy [None]
  - Balance disorder [None]
  - Muscular weakness [None]
  - Carpal tunnel syndrome [None]
